FAERS Safety Report 6249266-6 (Version None)
Quarter: 2009Q2

REPORT INFORMATION
  Report Type: 
  Country: None (occurrence: None)
  Receive Date: 20090629
  Receipt Date: 20090623
  Transmission Date: 20091009
  Serious: Yes (Hospitalization)
  Sender: FDA-Public Use
  Company Number: AU-MERCK-0906USA04851

PATIENT
  Age: 87 Year
  Sex: Female

DRUGS (9)
  1. ZOCOR [Suspect]
     Route: 048
     Dates: end: 20080925
  2. ASPIRIN [Concomitant]
     Route: 065
  3. CALTRATE PLUS [Concomitant]
     Route: 065
  4. FOLIC ACID [Concomitant]
     Route: 065
  5. METHOTREXATE [Concomitant]
     Route: 065
  6. MIRTAZON [Concomitant]
     Route: 065
  7. OROXINE [Concomitant]
     Route: 065
  8. UREMIDE [Concomitant]
     Route: 065
  9. VALPAM [Concomitant]
     Route: 065

REACTIONS (5)
  - ASTHENIA [None]
  - CONFUSIONAL STATE [None]
  - MOBILITY DECREASED [None]
  - MYOPATHY [None]
  - SYNCOPE [None]
